FAERS Safety Report 4524074-2 (Version None)
Quarter: 2004Q4

REPORT INFORMATION
  Report Type: 
  Country: None (occurrence: None)
  Receive Date: 20041209
  Receipt Date: 20041124
  Transmission Date: 20050328
  Serious: Yes (Other)
  Sender: FDA-Public Use
  Company Number: PHEH2004US12594

PATIENT
  Age: 89 Year
  Sex: Female

DRUGS (5)
  1. VERTEPORFIN (BATCH #: 01764B) [Suspect]
     Indication: CHOROIDAL NEOVASCULARISATION
     Dosage: 5.4 ML  IV
     Route: 042
     Dates: start: 20041110, end: 20041110
  2. CYCLOBENZAPRINE HYDROCHLORIDE [Concomitant]
  3. METOPROLOL TARTRATE [Concomitant]
  4. VALDECOXIB [Concomitant]
  5. HYDROCODONE BITARTRATE/PARACETAMOL [Concomitant]

REACTIONS (2)
  - CERUMEN IMPACTION [None]
  - HYPOACUSIS [None]
